FAERS Safety Report 8829370 (Version 1)
Quarter: 2012Q4

REPORT INFORMATION
  Report Type: Spontaneous
  Country: US (occurrence: None)
  Receive Date: 20121005
  Receipt Date: 20121005
  Transmission Date: 20130627
  Serious: Yes (Life-Threatening, Hospitalization)
  Sender: FDA-Public Use
  Company Number: None

PATIENT
  Sex: Female
  Weight: 54.43 kg

DRUGS (2)
  1. METHYLPHENIDATE [Suspect]
     Dosage: 20 mg 2xpr day oral
     Route: 048
     Dates: start: 200909
  2. METHYLPHENIDATE HYDROCHLORIDE [Suspect]

REACTIONS (8)
  - Cluster headache [None]
  - Palpitations [None]
  - Chest pain [None]
  - Throat tightness [None]
  - Flushing [None]
  - Confusional state [None]
  - Dry mouth [None]
  - Respiratory tract infection [None]
